FAERS Safety Report 7287998-1 (Version None)
Quarter: 2011Q1

REPORT INFORMATION
  Report Type: 
  Country: None (occurrence: None)
  Receive Date: 20110211
  Receipt Date: 20110131
  Transmission Date: 20110831
  Serious: Yes (Hospitalization)
  Sender: FDA-Public Use
  Company Number: US-JNJCH-2011003118

PATIENT
  Age: 41 Year
  Sex: Male
  Weight: 131.1 kg

DRUGS (1)
  1. NEOSPORIN [Suspect]
     Indication: SCRATCH
     Dosage: TEXT:ONCE DAILY
     Route: 061
     Dates: start: 20100701, end: 20110128

REACTIONS (5)
  - APPLICATION SITE RASH [None]
  - INTENTIONAL DRUG MISUSE [None]
  - DRUG INEFFECTIVE [None]
  - APPLICATION SITE INFECTION [None]
  - OFF LABEL USE [None]
